FAERS Safety Report 9434474 (Version 2)
Quarter: 2013Q3

REPORT INFORMATION
  Report Type: Spontaneous
  Country: JP (occurrence: JP)
  Receive Date: 20130801
  Receipt Date: 20130813
  Transmission Date: 20140515
  Serious: Yes (Hospitalization)
  Sender: FDA-Public Use
  Company Number: JP-AMGEN-JPNSP2013053795

PATIENT
  Age: 64 Year
  Sex: Male
  Weight: 58 kg

DRUGS (5)
  1. VECTIBIX [Suspect]
     Indication: RECTAL CANCER
     Dosage: 350 MG, Q3WK
     Route: 041
     Dates: start: 20130524, end: 20130614
  2. IRINOTECAN HYDROCHLORIDE [Concomitant]
     Indication: RECTAL CANCER
     Dosage: 240 MG, Q3WK
     Route: 041
     Dates: start: 20130524, end: 20130614
  3. 5-FU                               /00098801/ [Concomitant]
     Indication: RECTAL CANCER
     Dosage: 650 MG, Q3WK
     Route: 040
     Dates: start: 20130524, end: 20130615
  4. 5-FU                               /00098801/ [Concomitant]
     Dosage: 1000 MG, Q3WK
     Route: 041
     Dates: start: 20130524, end: 20130616
  5. LEVOFOLINATE [Concomitant]
     Indication: RECTAL CANCER
     Dosage: 160 MG, Q3WK
     Route: 041
     Dates: start: 20130524, end: 20130615

REACTIONS (1)
  - Intestinal obstruction [Recovering/Resolving]
